FAERS Safety Report 13072002 (Version 1)
Quarter: 2016Q4

REPORT INFORMATION
  Report Type: Spontaneous
  Country: US (occurrence: US)
  Receive Date: 20161229
  Receipt Date: 20161229
  Transmission Date: 20170207
  Serious: Yes (Hospitalization)
  Sender: FDA-Public Use
  Company Number: US-TEVA-723499USA

PATIENT
  Sex: Female
  Weight: 66 kg

DRUGS (1)
  1. VENLAFAXINE [Suspect]
     Active Substance: VENLAFAXINE HYDROCHLORIDE

REACTIONS (4)
  - Mania [Unknown]
  - Lethargy [Unknown]
  - Drug dispensing error [Unknown]
  - Insomnia [Unknown]
